FAERS Safety Report 6694636-5 (Version None)
Quarter: 2010Q2

REPORT INFORMATION
  Report Type: 
  Country: None (occurrence: None)
  Receive Date: 20100423
  Receipt Date: 20100421
  Transmission Date: 20101027
  Serious: Yes (Hospitalization)
  Sender: FDA-Public Use
  Company Number: A0855859A

PATIENT
  Age: 68 Year
  Sex: Female

DRUGS (7)
  1. NICODERM CQ [Suspect]
     Indication: SMOKING CESSATION THERAPY
     Route: 062
     Dates: start: 20100406, end: 20100419
  2. ZYPREXA [Concomitant]
  3. SYMBICORT [Concomitant]
     Route: 055
  4. COMBIVENT [Concomitant]
     Route: 055
  5. TRAZODONE HCL [Concomitant]
  6. TEGRETOL [Concomitant]
  7. UNKNOWN [Concomitant]

REACTIONS (7)
  - ANXIETY [None]
  - CHRONIC OBSTRUCTIVE PULMONARY DISEASE [None]
  - DRUG INEFFECTIVE [None]
  - DYSPNOEA [None]
  - ILL-DEFINED DISORDER [None]
  - OXYGEN SATURATION DECREASED [None]
  - SUICIDAL IDEATION [None]
